FAERS Safety Report 13274384 (Version 2)
Quarter: 2017Q3

REPORT INFORMATION
  Report Type: Spontaneous
  Country: ES (occurrence: ES)
  Receive Date: 20170227
  Receipt Date: 20170721
  Transmission Date: 20171127
  Serious: No
  Sender: FDA-Public Use
  Company Number: PHHY2017ES026207

PATIENT
  Age: 33 Year
  Sex: Female

DRUGS (3)
  1. PIRAZINAMIDA [Suspect]
     Active Substance: PYRAZINAMIDE
     Indication: TUBERCULOSIS
     Dosage: 20 MG/KG, QD
     Route: 048
  2. RIFAMPICIN [Suspect]
     Active Substance: RIFAMPIN
     Indication: TUBERCULOSIS
     Dosage: 10 MG/KG, QD
     Route: 048
  3. ISONIASID [Suspect]
     Active Substance: ISONIAZID
     Indication: TUBERCULOSIS
     Dosage: 5 MG/KG, QD
     Route: 048

REACTIONS (1)
  - Maternal exposure during pregnancy [Unknown]
